FAERS Safety Report 4489182-3 (Version None)
Quarter: 2004Q4

REPORT INFORMATION
  Report Type: 
  Country: None (occurrence: None)
  Receive Date: 20041029
  Receipt Date: 20040928
  Transmission Date: 20050328
  Serious: Yes (Death)
  Sender: FDA-Public Use
  Company Number: DE-JNJFOC-20041002582

PATIENT
  Age: 94 Year
  Sex: Female

DRUGS (3)
  1. DURAGESIC [Suspect]
     Indication: CANCER PAIN
     Route: 062
  2. CONCOR [Concomitant]
     Route: 049
  3. ATACAND [Concomitant]
     Route: 049

REACTIONS (2)
  - ARTHRALGIA [None]
  - MALIGNANT NEOPLASM PROGRESSION [None]
